FAERS Safety Report 19443946 (Version 2)
Quarter: 2021Q4

REPORT INFORMATION
  Report Type: Spontaneous
  Country: FR (occurrence: FR)
  Receive Date: 20210621
  Receipt Date: 20211020
  Transmission Date: 20220303
  Serious: Yes (Other)
  Sender: FDA-Public Use
  Company Number: None

PATIENT
  Age: 9 Year
  Sex: Female

DRUGS (7)
  1. OLANZAPINE [Suspect]
     Active Substance: OLANZAPINE
     Indication: Premedication
     Dosage: 2.5 MG, DAILY
     Route: 048
     Dates: start: 20210510, end: 20210510
  2. IFOSFAMIDE [Suspect]
     Active Substance: IFOSFAMIDE
     Indication: Pancreatoblastoma
     Dosage: 320 MG, UNKNOWN
     Route: 042
     Dates: start: 20210512, end: 20210512
  3. DEXAMETHASONE [Suspect]
     Active Substance: DEXAMETHASONE
     Indication: Premedication
     Dosage: 18 MG, DAILY
     Route: 042
     Dates: start: 20210510, end: 20210510
  4. ETOPOSIDE [Suspect]
     Active Substance: ETOPOSIDE
     Indication: Pancreatoblastoma
     Dosage: 110 MG, OTHER
     Route: 042
     Dates: start: 20210510, end: 20210510
  5. ALIZAPRIDE HYDROCHLORIDE [Suspect]
     Active Substance: ALIZAPRIDE HYDROCHLORIDE
     Indication: Premedication
     Dosage: 60 MG, DAILY
     Route: 042
     Dates: start: 20210510, end: 20210510
  6. EMEND [Suspect]
     Active Substance: APREPITANT
     Indication: Premedication
     Dosage: 1 DOSAGE FORM, OTHER
     Route: 048
     Dates: start: 20210510, end: 20210510
  7. ONDANSETRON [Suspect]
     Active Substance: ONDANSETRON
     Indication: Premedication
     Dosage: 3 DOSAGE FORM, DAILY
     Route: 048
     Dates: start: 20210510, end: 20210510

REACTIONS (3)
  - Aplasia [Recovering/Resolving]
  - Pyrexia [Recovered/Resolved]
  - Off label use [Unknown]

NARRATIVE: CASE EVENT DATE: 20210512
